FAERS Safety Report 12860285 (Version 2)
Quarter: 2017Q4

REPORT INFORMATION
  Report Type: Spontaneous
  Country: US (occurrence: US)
  Receive Date: 20161019
  Receipt Date: 20171107
  Transmission Date: 20180320
  Serious: No
  Sender: FDA-Public Use
  Company Number: US-LUPIN PHARMACEUTICALS INC.-E2B_00006074

PATIENT
  Sex: Male
  Weight: 95.25 kg

DRUGS (1)
  1. LISINOPRIL TABLETS USP, 2.5MG [Suspect]
     Active Substance: LISINOPRIL
     Indication: HYPERTENSION
     Dosage: 2.5 MG,QD,
     Route: 048

REACTIONS (2)
  - Muscle spasms [Recovered/Resolved]
  - Trismus [Recovered/Resolved]
